FAERS Safety Report 5650520-7 (Version None)
Quarter: 2008Q1

REPORT INFORMATION
  Report Type: 
  Country: None (occurrence: None)
  Receive Date: 20080304
  Receipt Date: 20080304
  Transmission Date: 20080703
  Serious: Yes (Hospitalization)
  Sender: FDA-Public Use
  Company Number: None

PATIENT
  Sex: Male
  Weight: 79.4 kg

DRUGS (1)
  1. PROPOFOL [Suspect]
     Indication: SEDATION
     Dosage: 30 MG ONE IV  ONCE
     Route: 042
     Dates: start: 20080201, end: 20080201

REACTIONS (4)
  - CHILLS [None]
  - MYALGIA [None]
  - POST PROCEDURAL COMPLICATION [None]
  - PYREXIA [None]
